FAERS Safety Report 26086775 (Version 1)
Quarter: 2025Q4

REPORT INFORMATION
  Report Type: Spontaneous
  Country: AR (occurrence: AR)
  Receive Date: 20251125
  Receipt Date: 20251125
  Transmission Date: 20260118
  Serious: Yes (Other)
  Sender: GLAXOSMITHKLINE
  Company Number: AR-GLAXOSMITHKLINE INC-AR2025150321

PATIENT
  Age: 75 Year
  Sex: Female

DRUGS (2)
  1. ANORO ELLIPTA [Suspect]
     Active Substance: UMECLIDINIUM BROMIDE\VILANTEROL TRIFENATATE
     Indication: Chronic obstructive pulmonary disease
     Dosage: 1 PUFF(S), QD
  2. LEVOTHYROXINE [Concomitant]
     Active Substance: LEVOTHYROXINE
     Indication: Product used for unknown indication

REACTIONS (1)
  - Dyspnoea [Not Recovered/Not Resolved]
